FAERS Safety Report 6415668-8 (Version None)
Quarter: 2009Q4

REPORT INFORMATION
  Report Type: 
  Country: None (occurrence: None)
  Receive Date: 20091027
  Receipt Date: 20091020
  Transmission Date: 20100525
  Serious: Yes (Other)
  Sender: FDA-Public Use
  Company Number: FI-ROCHE-664059

PATIENT
  Sex: Female

DRUGS (2)
  1. MIRCERA [Suspect]
     Route: 065
     Dates: start: 20081015
  2. MIRCERA [Suspect]
     Route: 065
     Dates: start: 20090401

REACTIONS (1)
  - METASTASES TO LIVER [None]
